FAERS Safety Report 4715305-4 (Version None)
Quarter: 2005Q3

REPORT INFORMATION
  Report Type: 
  Country: None (occurrence: None)
  Receive Date: 20050715
  Receipt Date: 20050707
  Transmission Date: 20060218
  Serious: Yes (Hospitalization)
  Sender: FDA-Public Use
  Company Number: SE-ABBOTT-05P-150-0305115-00

PATIENT
  Age: 33 Year
  Sex: Female

DRUGS (2)
  1. REDUCTIL 10MG [Suspect]
     Indication: OBESITY
     Route: 048
     Dates: start: 20050407, end: 20050506
  2. REDUCTIL 10MG [Suspect]
     Dates: start: 20050604

REACTIONS (4)
  - DIPLOPIA [None]
  - RETINITIS [None]
  - TOXOPLASMOSIS [None]
  - VISUAL ACUITY REDUCED [None]
